FAERS Safety Report 5145721-0 (Version None)
Quarter: 2006Q4

REPORT INFORMATION
  Report Type: 
  Country: None (occurrence: None)
  Receive Date: 20060915
  Receipt Date: 20060118
  Transmission Date: 20070319
  Serious: Yes (Hospitalization)
  Sender: FDA-Public Use
  Company Number: S06-USA-00211-01

PATIENT
  Age: 77 Year
  Sex: Male

DRUGS (8)
  1. CELEXA [Suspect]
     Indication: DEPRESSION
     Dosage: 20 MG QD PO
     Route: 048
     Dates: start: 20050701, end: 20050816
  2. DEPAKOTE [Concomitant]
  3. REMERON [Concomitant]
  4. XALATAN [Concomitant]
  5. ASPIRIN [Concomitant]
  6. LIPITOR [Concomitant]
  7. METOPROLOL SUCCINATE [Concomitant]
  8. ZYPREXA [Concomitant]

REACTIONS (3)
  - CONVULSION [None]
  - RASH [None]
  - VISUAL DISTURBANCE [None]
